FAERS Safety Report 18961060 (Version 1)
Quarter: 2021Q1

REPORT INFORMATION
  Report Type: Spontaneous
  Country: BR (occurrence: BR)
  Receive Date: 20210302
  Receipt Date: 20210302
  Transmission Date: 20210420
  Serious: Yes (Other)
  Sender: FDA-Public Use
  Company Number: JP-SUNOVION-2021SUN000631

PATIENT
  Sex: Female

DRUGS (5)
  1. LATUDA [Suspect]
     Active Substance: LURASIDONE HYDROCHLORIDE
     Dosage: 80 MG
     Route: 065
     Dates: start: 201905, end: 2020
  2. LAMOTRIGINE. [Concomitant]
     Active Substance: LAMOTRIGINE
     Dosage: UNK
     Dates: start: 202010
  3. LATUDA [Suspect]
     Active Substance: LURASIDONE HYDROCHLORIDE
     Indication: BIPOLAR DISORDER
     Dosage: UNK
     Route: 065
     Dates: start: 20180619
  4. LATUDA [Suspect]
     Active Substance: LURASIDONE HYDROCHLORIDE
     Dosage: UNK
     Route: 065
     Dates: start: 202010
  5. LITHIUM. [Concomitant]
     Active Substance: LITHIUM
     Dosage: UNK
     Dates: start: 202010

REACTIONS (7)
  - Hypomania [Unknown]
  - Fatigue [Recovered/Resolved]
  - Product administration interrupted [Recovered/Resolved]
  - Feeding disorder [Unknown]
  - Metabolic surgery [Recovered/Resolved]
  - Fatigue [Unknown]
  - Somnolence [Unknown]

NARRATIVE: CASE EVENT DATE: 2018
